FAERS Safety Report 6572025-1 (Version None)
Quarter: 2010Q1

REPORT INFORMATION
  Report Type: 
  Country: None (occurrence: None)
  Receive Date: 20100205
  Receipt Date: 20100127
  Transmission Date: 20100710
  Serious: Yes (Death, Hospitalization, Other)
  Sender: FDA-Public Use
  Company Number: GB-PFIZER INC-2009310835

PATIENT
  Sex: Female
  Weight: 50 kg

DRUGS (12)
  1. SILDENAFIL CITRATE [Suspect]
     Indication: PULMONARY HYPERTENSION
     Dosage: 1 MG, HOURLY
     Route: 042
     Dates: start: 20091130
  2. VASOPRESSIN [Suspect]
     Indication: PULMONARY HYPERTENSION
     Dosage: 2.4 IU, HOURLY
     Route: 042
     Dates: start: 20091130, end: 20091130
  3. VASOPRESSIN [Suspect]
     Indication: MEAN ARTERIAL PRESSURE
  4. NORADRENALINE [Suspect]
     Dosage: 0.3 UG/KG, 1X/MINUTE
  5. DOBUTAMINE [Suspect]
     Dosage: 5.5 UG/KG, 1X/MINUTE
  6. MILRINONE [Suspect]
     Indication: PULMONARY HYPERTENSION
     Dosage: 0.4 UG/KG, 1X/MINUTE
     Route: 042
     Dates: start: 20091130, end: 20091130
  7. MILRINONE [Suspect]
     Indication: MEAN ARTERIAL PRESSURE
  8. ADRENALINE [Suspect]
     Indication: PULMONARY HYPERTENSION
     Dosage: 0.4 UG/KG, 1X/MINUTE
     Route: 042
     Dates: start: 20091130, end: 20091130
  9. ADRENALINE [Suspect]
     Indication: MEAN ARTERIAL PRESSURE
  10. NITRIC OXIDE [Suspect]
     Indication: PULMONARY HYPERTENSION
     Dosage: 19 PPM
     Route: 055
     Dates: start: 20091130, end: 20091130
  11. NITRIC OXIDE [Suspect]
     Indication: MEAN ARTERIAL PRESSURE
  12. GELOFUSINE [Suspect]

REACTIONS (4)
  - DEATH [None]
  - PULMONARY EMBOLISM [None]
  - RIGHT ATRIAL DILATATION [None]
  - TRICUSPID VALVE INCOMPETENCE [None]
